FAERS Safety Report 7072224-9 (Version None)
Quarter: 2010Q4

REPORT INFORMATION
  Report Type: 
  Country: None (occurrence: None)
  Receive Date: 20101029
  Receipt Date: 20100104
  Transmission Date: 20110411
  Serious: No
  Sender: FDA-Public Use
  Company Number: A0836433A

PATIENT
  Age: 63 Year
  Sex: Male

DRUGS (6)
  1. ADVAIR DISKUS 100/50 [Suspect]
     Indication: CHRONIC OBSTRUCTIVE PULMONARY DISEASE
     Dosage: 1PUFF PER DAY
     Route: 055
     Dates: start: 20090701
  2. VENTOLIN [Concomitant]
  3. FLONASE [Concomitant]
  4. OSTEO BI-FLEX [Concomitant]
  5. LOVAZA [Concomitant]
  6. MULTI-VITAMIN [Concomitant]

REACTIONS (4)
  - CHEST DISCOMFORT [None]
  - HEADACHE [None]
  - INCREASED UPPER AIRWAY SECRETION [None]
  - WHEEZING [None]
